FAERS Safety Report 20999568 (Version 2)
Quarter: 2022Q2

REPORT INFORMATION
  Report Type: Spontaneous
  Country: CR (occurrence: CR)
  Receive Date: 20220623
  Receipt Date: 20220624
  Transmission Date: 20220721
  Serious: Yes (Death, Other)
  Sender: FDA-Public Use
  Company Number: CR-009507513-2206CRI005901

PATIENT
  Age: 84 Year
  Sex: Male

DRUGS (1)
  1. KEYTRUDA [Suspect]
     Active Substance: PEMBROLIZUMAB
     Indication: Squamous cell carcinoma
     Dosage: FIRST AND ONLY CYCLE, MONOTHERAPY
     Dates: start: 202205

REACTIONS (4)
  - Tumour necrosis [Fatal]
  - Arterial rupture [Fatal]
  - Aspiration [Fatal]
  - Bronchoscopy [Unknown]

NARRATIVE: CASE EVENT DATE: 20220101
